FAERS Safety Report 4675017-2 (Version None)
Quarter: 2005Q2

REPORT INFORMATION
  Report Type: 
  Country: None (occurrence: None)
  Receive Date: 20050525
  Receipt Date: 20050513
  Transmission Date: 20051028
  Serious: No
  Sender: FDA-Public Use
  Company Number: 214505

PATIENT
  Age: 11 Year
  Sex: Male
  Weight: 22 kg

DRUGS (1)
  1. NUTROPIN AQ [Suspect]
     Indication: NOONAN SYNDROME
     Dosage: 1 MG, QD, SUBCUTANEOUS
     Route: 058
     Dates: start: 20030418, end: 20050506

REACTIONS (1)
  - NEUROECTODERMAL NEOPLASM [None]
